FAERS Safety Report 24594746 (Version 1)
Quarter: 2024Q4

REPORT INFORMATION
  Report Type: Spontaneous
  Country: US (occurrence: None)
  Receive Date: 20241108
  Receipt Date: 20241108
  Transmission Date: 20250115
  Serious: Yes (Hospitalization)
  Sender: Public
  Company Number: None

PATIENT
  Sex: Female

DRUGS (1)
  1. LENALIDOMIDE [Suspect]
     Active Substance: LENALIDOMIDE
     Dosage: OTHER FREQUENCY : 1TIMEDAILYFOR21DAYS7DAYS OFF ;?
     Route: 048
     Dates: start: 202403

REACTIONS (2)
  - Pneumonia [None]
  - Myocardial infarction [None]
